FAERS Safety Report 4302651-1 (Version None)
Quarter: 2004Q1

REPORT INFORMATION
  Report Type: 
  Country: None (occurrence: None)
  Receive Date: 20040126
  Receipt Date: 20031013
  Transmission Date: 20041129
  Serious: No
  Sender: FDA-Public Use
  Company Number: USA031049642

PATIENT
  Age: 15 Year
  Sex: Male
  Weight: 68 kg

DRUGS (1)
  1. STRATTERA [Suspect]
     Dosage: 40 MG/DAY
     Dates: start: 20030901

REACTIONS (6)
  - ANOREXIA [None]
  - DECREASED INTEREST [None]
  - EPISTAXIS [None]
  - GINGIVAL BLEEDING [None]
  - INSOMNIA [None]
  - SOMNOLENCE [None]
